FAERS Safety Report 8298864-7 (Version None)
Quarter: 2012Q2

REPORT INFORMATION
  Report Type: 
  Country: None (occurrence: None)
  Receive Date: 20120419
  Receipt Date: 20120410
  Transmission Date: 20120825
  Serious: Yes (Other)
  Sender: FDA-Public Use
  Company Number: FR-ASTRAZENECA-2012SE24132

PATIENT

DRUGS (1)
  1. PROPOFOL [Suspect]
     Route: 042

REACTIONS (1)
  - PULMONARY ALVEOLAR HAEMORRHAGE [None]
